FAERS Safety Report 7027248-4 (Version None)
Quarter: 2010Q4

REPORT INFORMATION
  Report Type: 
  Country: None (occurrence: None)
  Receive Date: 20101001
  Receipt Date: 20101001
  Transmission Date: 20110411
  Serious: Yes (Other)
  Sender: FDA-Public Use
  Company Number: None

PATIENT
  Age: 30 Year
  Sex: Male
  Weight: 93.2 kg

DRUGS (1)
  1. KENALOG-40 [Suspect]
     Indication: TENDONITIS
     Dosage: 40 MG 1 SHOT IN SHOULDER AT BICEPT TENDON
     Dates: start: 20100921

REACTIONS (7)
  - DIZZINESS [None]
  - DYSARTHRIA [None]
  - HYPERHIDROSIS [None]
  - LOSS OF CONSCIOUSNESS [None]
  - NAUSEA [None]
  - PARAESTHESIA [None]
  - URINARY INCONTINENCE [None]
